FAERS Safety Report 9717540 (Version 1)
Quarter: 2013Q4

REPORT INFORMATION
  Report Type: Spontaneous
  Country: US (occurrence: US)
  Receive Date: 20131127
  Receipt Date: 20131127
  Transmission Date: 20140711
  Serious: Yes (Hospitalization)
  Sender: FDA-Public Use
  Company Number: US-GILEAD-2009-0020827

PATIENT
  Age: 72 Year
  Sex: Male
  Weight: 72.57 kg

DRUGS (10)
  1. LETAIRIS [Suspect]
     Indication: PULMONARY ARTERIAL HYPERTENSION
     Route: 048
     Dates: start: 20090224, end: 20090309
  2. LETAIRIS [Suspect]
     Route: 048
     Dates: start: 20090128, end: 200902
  3. ZOCOR [Concomitant]
  4. COREG [Concomitant]
  5. COUMADIN [Concomitant]
  6. BENADRYL [Concomitant]
  7. K-DUR [Concomitant]
  8. PRANDIN [Concomitant]
  9. ZANTAC [Concomitant]
  10. ZAROXOLYN [Concomitant]

REACTIONS (1)
  - Oedema [Not Recovered/Not Resolved]
